FAERS Safety Report 8501246-3 (Version None)
Quarter: 2012Q3

REPORT INFORMATION
  Report Type: 
  Country: None (occurrence: None)
  Receive Date: 20120710
  Receipt Date: 20120706
  Transmission Date: 20120928
  Serious: Yes (Hospitalization)
  Sender: FDA-Public Use
  Company Number: GB-PFIZER INC-2012162326

PATIENT
  Age: 62 Year
  Sex: Female

DRUGS (5)
  1. OMEPRAZOLE [Concomitant]
     Dosage: UNK
     Route: 048
     Dates: start: 20120521
  2. BISOPROLOL FUMARATE [Concomitant]
     Dosage: UNK
     Route: 048
     Dates: start: 20120419
  3. CLOPIDOGREL [Concomitant]
     Dosage: UNK
     Route: 048
     Dates: start: 20120319
  4. RAMIPRIL [Concomitant]
     Dosage: UNK
     Route: 048
     Dates: start: 20120502
  5. ATORVASTATIN CALCIUM [Suspect]
     Indication: PRODUCT USED FOR UNKNOWN INDICATION
     Dosage: 80 MG, 1X/DAY
     Route: 048
     Dates: start: 20120612, end: 20120616

REACTIONS (1)
  - HYPERTENSION [None]
